FAERS Safety Report 6280009-6 (Version None)
Quarter: 2009Q3

REPORT INFORMATION
  Report Type: 
  Country: None (occurrence: None)
  Receive Date: 20090723
  Receipt Date: 20090721
  Transmission Date: 20100115
  Serious: No
  Sender: FDA-Public Use
  Company Number: US-B.I. PHARMACEUTICALS,INC./RIDGEFIELD-2009-BP-08676BP

PATIENT
  Sex: Male

DRUGS (4)
  1. SPIRIVA [Suspect]
     Indication: CHRONIC OBSTRUCTIVE PULMONARY DISEASE
     Dosage: 18 MCG
     Route: 055
     Dates: start: 20080401, end: 20090601
  2. COMBIVENT [Suspect]
     Indication: CHRONIC OBSTRUCTIVE PULMONARY DISEASE
     Route: 055
     Dates: start: 20070101, end: 20090601
  3. LISINOPRIL [Suspect]
     Indication: HYPERTENSION
     Dates: end: 20090601
  4. FUROSEMIDE [Suspect]
     Indication: OEDEMA PERIPHERAL
     Dates: end: 20090601

REACTIONS (4)
  - ECZEMA [None]
  - INSOMNIA [None]
  - PRURITUS GENERALISED [None]
  - RASH [None]
